FAERS Safety Report 5702515-2 (Version None)
Quarter: 2008Q2

REPORT INFORMATION
  Report Type: 
  Country: None (occurrence: None)
  Receive Date: 20080411
  Receipt Date: 20071015
  Transmission Date: 20081010
  Serious: No
  Sender: FDA-Public Use
  Company Number: US-ASTRAZENECA-2007UW23799

PATIENT
  Sex: Female

DRUGS (3)
  1. ATENOLOL [Suspect]
     Route: 048
  2. COZAAR [Concomitant]
     Route: 048
  3. HYDROCHLOROTHIAZIDE [Concomitant]
     Route: 048

REACTIONS (2)
  - BLOOD PRESSURE ABNORMAL [None]
  - PULSE ABNORMAL [None]
